FAERS Safety Report 5086311-8 (Version None)
Quarter: 2006Q3

REPORT INFORMATION
  Report Type: 
  Country: None (occurrence: None)
  Receive Date: 20060703
  Receipt Date: 20060309
  Transmission Date: 20061208
  Serious: No
  Sender: FDA-Public Use
  Company Number: 2006S1002182

PATIENT
  Age: 25 Year
  Sex: Female

DRUGS (6)
  1. CLOZAPINE [Suspect]
     Dosage: 200 MG; HS; ORAL
     Route: 048
     Dates: start: 20060206, end: 20060228
  2. CHLORPROMAZINE [Concomitant]
  3. LITHIUM [Concomitant]
  4. BENZATROPINE SULFATE [Concomitant]
  5. TRAZODONE HCL [Concomitant]
  6. HYDROXYZINE [Concomitant]

REACTIONS (1)
  - LEUKOPENIA [None]
